FAERS Safety Report 20279253 (Version 4)
Quarter: 2022Q1

REPORT INFORMATION
  Report Type: Spontaneous
  Country: BR (occurrence: BR)
  Receive Date: 20220103
  Receipt Date: 20220225
  Transmission Date: 20220423
  Serious: No
  Sender: FDA-Public Use
  Company Number: BR-NOVARTISPH-NVSC2021BR299268

PATIENT
  Age: 58 Year
  Sex: Male
  Weight: 78 kg

DRUGS (1)
  1. CIPROFLOXACIN HYDROCHLORIDE [Suspect]
     Active Substance: CIPROFLOXACIN HYDROCHLORIDE
     Indication: Diverticulitis
     Dosage: 500 MG
     Route: 048
     Dates: start: 20211227

REACTIONS (7)
  - Oral discomfort [Unknown]
  - Skin discolouration [Unknown]
  - Lip discolouration [Unknown]
  - Burning sensation [Unknown]
  - Fordyce spots [Unknown]
  - Lip disorder [Unknown]
  - Pruritus [Unknown]

NARRATIVE: CASE EVENT DATE: 20211227
